FAERS Safety Report 10219423 (Version 1)
Quarter: 2014Q2

REPORT INFORMATION
  Report Type: Spontaneous
  Country: US (occurrence: None)
  Receive Date: 20140604
  Receipt Date: 20140604
  Transmission Date: 20141212
  Serious: No
  Sender: FDA-Public Use
  Company Number: None

PATIENT
  Age: 49 Year
  Sex: Female

DRUGS (1)
  1. ENBREL 50MG [Suspect]
     Indication: PSORIASIS
     Dosage: 50MG, BIW, SQ
     Route: 058
     Dates: start: 20130911

REACTIONS (5)
  - Lip swelling [None]
  - Oedema mouth [None]
  - Swollen tongue [None]
  - Dyspnoea [None]
  - Dysphagia [None]
